FAERS Safety Report 15980725 (Version 1)
Quarter: 2019Q1

REPORT INFORMATION
  Report Type: Spontaneous
  Country: US (occurrence: US)
  Receive Date: 20190124
  Receipt Date: 20190124
  Transmission Date: 20190418
  Serious: No
  Sender: FDA-Public Use
  Company Number: None

PATIENT
  Age: 24 Year
  Sex: Female

DRUGS (1)
  1. CEFTRIAXONE SODIUM 2 [Suspect]
     Active Substance: CEFTRIAXONE SODIUM
     Indication: EXTRADURAL ABSCESS
     Dosage: ?          OTHER FREQUENCY:Q24H;?
     Route: 042
     Dates: start: 20101226, end: 20190119

REACTIONS (2)
  - Drug hypersensitivity [None]
  - Pruritus genital [None]

NARRATIVE: CASE EVENT DATE: 20190118
